FAERS Safety Report 18737457 (Version 1)
Quarter: 2021Q1

REPORT INFORMATION
  Report Type: Spontaneous
  Country: NO (occurrence: NO)
  Receive Date: 20210113
  Receipt Date: 20210113
  Transmission Date: 20210419
  Serious: Yes (Death, Hospitalization, Disabling)
  Sender: FDA-Public Use
  Company Number: NO-009507513-2101NOR005282

PATIENT
  Age: 70 Year
  Sex: Female

DRUGS (3)
  1. ALENDRONIC ACID [Concomitant]
     Active Substance: ALENDRONIC ACID
     Dosage: 70 MILLIGRAM, QW
     Route: 048
  2. PEMBROLIZUMAB. [Suspect]
     Active Substance: PEMBROLIZUMAB
     Indication: NON-SMALL CELL LUNG CANCER
     Dosage: 200 MILLIGRAM, Q3W(LAST THERAPY CYCLE GIVEN 03/NOV/2020)
     Route: 042
     Dates: start: 20200204, end: 20201103
  3. CALCIGRAN FORTE [Concomitant]
     Active Substance: CALCIUM CARBONATE\CHOLECALCIFEROL
     Route: 048

REACTIONS (1)
  - Immune-mediated encephalopathy [Fatal]

NARRATIVE: CASE EVENT DATE: 20201104
